FAERS Safety Report 7691846-5 (Version None)
Quarter: 2011Q3

REPORT INFORMATION
  Report Type: 
  Country: None (occurrence: None)
  Receive Date: 20110818
  Receipt Date: 20110809
  Transmission Date: 20111222
  Serious: Yes (Other)
  Sender: FDA-Public Use
  Company Number: CA-JNJFOC-20110806164

PATIENT
  Sex: Male
  Weight: 79 kg

DRUGS (9)
  1. CALCIUM CARBONATE [Concomitant]
  2. VITAMIN D [Concomitant]
  3. AMITRIPTYLINE HCL [Concomitant]
  4. REMICADE [Suspect]
     Dosage: 24TH INFUSION
     Route: 042
     Dates: start: 20110809
  5. REMICADE [Suspect]
     Route: 042
     Dates: start: 20081021
  6. REMICADE [Suspect]
     Indication: CROHN'S DISEASE
     Dosage: 23RD INFUSION
     Route: 042
     Dates: start: 20110623
  7. EFFEXOR [Concomitant]
  8. TYLENOL W/ CODEINE [Concomitant]
  9. METFORMIN [Concomitant]

REACTIONS (1)
  - NEPHROLITHIASIS [None]
